FAERS Safety Report 13758216 (Version 5)
Quarter: 2017Q3

REPORT INFORMATION
  Report Type: Report from Study
  Country: CA (occurrence: CA)
  Receive Date: 20170717
  Receipt Date: 20170925
  Transmission Date: 20171127
  Serious: Yes (Other)
  Sender: FDA-Public Use
  Company Number: CA-GLAXOSMITHKLINE-CA2017GSK108763

PATIENT
  Sex: Female

DRUGS (1)
  1. MEPOLIZUMAB [Suspect]
     Active Substance: MEPOLIZUMAB
     Indication: ASTHMA
     Dosage: 100 MG, Z
     Route: 042

REACTIONS (9)
  - Lower respiratory tract infection [Unknown]
  - Mast cell activation syndrome [Unknown]
  - Anaphylactic reaction [Unknown]
  - Productive cough [Unknown]
  - Ill-defined disorder [Not Recovered/Not Resolved]
  - Malaise [Unknown]
  - Wheezing [Unknown]
  - Pneumonia [Unknown]
  - Dyspnoea [Unknown]

NARRATIVE: CASE EVENT DATE: 2016
